FAERS Safety Report 10785231 (Version 1)
Quarter: 2015Q1

REPORT INFORMATION
  Report Type: Spontaneous
  Country: US (occurrence: None)
  Receive Date: 20150209
  Receipt Date: 20150209
  Transmission Date: 20150721
  Serious: Yes (Hospitalization, Other)
  Sender: FDA-Public Use
  Company Number: BD-2015-0063

PATIENT
  Age: 17 Year
  Sex: Male

DRUGS (3)
  1. FLUOXETINE [Concomitant]
     Active Substance: FLUOXETINE\FLUOXETINE HYDROCHLORIDE
  2. DIPHENHYDRAMINE [Suspect]
     Active Substance: DIPHENHYDRAMINE
     Indication: SUICIDE ATTEMPT
  3. RISPERIDONE. [Concomitant]
     Active Substance: RISPERIDONE

REACTIONS (10)
  - Drug abuse [None]
  - Suicide attempt [None]
  - Psychomotor retardation [None]
  - Agitation [None]
  - Intentional overdose [None]
  - Dysuria [None]
  - Hallucination [None]
  - Psychotic disorder [None]
  - Major depression [None]
  - Tremor [None]
